FAERS Safety Report 5269322-9 (Version None)
Quarter: 2007Q1

REPORT INFORMATION
  Report Type: 
  Country: None (occurrence: None)
  Receive Date: 20070319
  Receipt Date: 20070307
  Transmission Date: 20070707
  Serious: Yes (Death, Hospitalization)
  Sender: FDA-Public Use
  Company Number: BR-PFIZER INC-2007009757

PATIENT
  Sex: Male
  Weight: 82 kg

DRUGS (9)
  1. SU-011,248 [Suspect]
     Indication: METASTATIC RENAL CELL CARCINOMA
     Route: 048
     Dates: start: 20060830, end: 20070203
  2. OMEPRAZOLE [Concomitant]
     Route: 048
     Dates: start: 20061120, end: 20070202
  3. CUMADIN [Concomitant]
     Route: 048
     Dates: start: 20060824, end: 20070201
  4. TRAMADOL HCL [Concomitant]
     Route: 048
     Dates: start: 20070127, end: 20070201
  5. DEFLAZACORT [Concomitant]
     Route: 048
     Dates: start: 20070124, end: 20070201
  6. OMEPRAZOLE [Concomitant]
     Route: 042
     Dates: start: 20070202
  7. TRAMADOL HCL [Concomitant]
     Route: 042
     Dates: start: 20070202, end: 20070202
  8. DEXAMETHASONE [Concomitant]
     Route: 048
     Dates: start: 20070102, end: 20070123
  9. OXYCONTIN [Concomitant]
     Route: 048
     Dates: start: 20070110, end: 20070125

REACTIONS (5)
  - ACUTE RESPIRATORY FAILURE [None]
  - DISEASE PROGRESSION [None]
  - METASTATIC RENAL CELL CARCINOMA [None]
  - PULMONARY EMBOLISM [None]
  - RENAL FAILURE ACUTE [None]
